FAERS Safety Report 22365171 (Version 2)
Quarter: 2023Q2

REPORT INFORMATION
  Report Type: Report from Study
  Country: US (occurrence: US)
  Receive Date: 20230525
  Receipt Date: 20230605
  Transmission Date: 20230722
  Serious: Yes (Hospitalization)
  Sender: FDA-Public Use
  Company Number: US-China IPSEN SC-2023-11634

PATIENT
  Age: 23 Year
  Sex: Male
  Weight: 63.9 kg

DRUGS (16)
  1. ONIVYDE [Suspect]
     Active Substance: IRINOTECAN HYDROCHLORIDE
     Indication: Ewing^s sarcoma
     Dosage: ONCE
     Route: 042
     Dates: start: 20230502, end: 20230502
  2. TALAZOPARIB [Suspect]
     Active Substance: TALAZOPARIB
     Indication: Ewing^s sarcoma
     Dosage: BID
     Route: 048
     Dates: start: 20230502
  3. TALAZOPARIB [Suspect]
     Active Substance: TALAZOPARIB
     Dosage: QD DAYS 2-6
     Route: 048
     Dates: start: 20230507
  4. DIPHENHYDRAMINE [Concomitant]
     Active Substance: DIPHENHYDRAMINE
     Indication: Antiallergic therapy
     Dosage: Q8H PRN
     Route: 048
     Dates: start: 20230125
  5. DIPHENHYDRAMINE [Concomitant]
     Active Substance: DIPHENHYDRAMINE
     Dosage: Q6H PRN
     Route: 048
     Dates: start: 20230125
  6. FAMOTIDINE [Concomitant]
     Active Substance: FAMOTIDINE
     Indication: Prophylaxis
     Dosage: BID
     Route: 048
     Dates: start: 20230126
  7. LORAZEPAM [Concomitant]
     Active Substance: LORAZEPAM
     Indication: Antiemetic supportive care
     Dosage: Q6H PRN
     Route: 048
     Dates: start: 20230125
  8. HYOSCYAMINE [Concomitant]
     Active Substance: HYOSCYAMINE
     Indication: Muscle spasms
     Dosage: Q4H PRN
     Route: 060
     Dates: start: 20230202
  9. LOPERAMIDE [Concomitant]
     Active Substance: LOPERAMIDE
     Indication: Antidiarrhoeal supportive care
     Dosage: Q2H PRN
     Route: 048
     Dates: start: 20230125
  10. GRANISETRON [Concomitant]
     Active Substance: GRANISETRON
     Indication: Antiemetic supportive care
     Dosage: BID
     Route: 048
     Dates: start: 20230125
  11. SULFAMETHOXAZOLE\TRIMETHOPRIM [Concomitant]
     Active Substance: SULFAMETHOXAZOLE\TRIMETHOPRIM
     Indication: Prophylaxis
     Dosage: BID MON/TUE/WED
     Route: 048
     Dates: start: 20230125
  12. TIZANIDINE [Concomitant]
     Active Substance: TIZANIDINE
     Indication: Analgesic therapy
     Dosage: Q 8H PRN
     Route: 048
     Dates: start: 20230321
  13. PROMETHAZINE [Concomitant]
     Active Substance: PROMETHAZINE HYDROCHLORIDE
     Indication: Antiemetic supportive care
     Dosage: Q 6H PRN
     Route: 048
     Dates: start: 20230125
  14. NAPROXEN [Concomitant]
     Active Substance: NAPROXEN
     Indication: Analgesic therapy
     Dosage: BID
     Route: 048
     Dates: start: 20230407
  15. CETIRIZINE [Concomitant]
     Active Substance: CETIRIZINE HYDROCHLORIDE
     Indication: Antiallergic therapy
     Dosage: QD
     Route: 048
     Dates: start: 20230427
  16. BUPROPION [Concomitant]
     Active Substance: BUPROPION
     Indication: Antidepressant therapy
     Dosage: QD
     Route: 048
     Dates: start: 20230403, end: 20230409

REACTIONS (2)
  - Chest pain [Not Recovered/Not Resolved]
  - Pyrexia [Not Recovered/Not Resolved]
